FAERS Safety Report 18672895 (Version 2)
Quarter: 2021Q1

REPORT INFORMATION
  Report Type: Spontaneous
  Country: US (occurrence: US)
  Receive Date: 20201229
  Receipt Date: 20210126
  Transmission Date: 20210419
  Serious: No
  Sender: FDA-Public Use
  Company Number: US-SA-2020SA364072

PATIENT
  Sex: Female

DRUGS (2)
  1. DUPIXENT [Suspect]
     Active Substance: DUPILUMAB
     Indication: DERMATITIS ATOPIC
     Dosage: 300 MG, QOW
     Route: 058
  2. ATIVAN [Concomitant]
     Active Substance: LORAZEPAM

REACTIONS (8)
  - Pain of skin [Unknown]
  - Scratch [Not Recovered/Not Resolved]
  - Hypoaesthesia [Unknown]
  - Skin burning sensation [Unknown]
  - Drug ineffective [Not Recovered/Not Resolved]
  - Paraesthesia [Unknown]
  - Formication [Unknown]
  - Dermatitis atopic [Not Recovered/Not Resolved]
